FAERS Safety Report 4676188-4 (Version None)
Quarter: 2005Q2

REPORT INFORMATION
  Report Type: 
  Country: None (occurrence: None)
  Receive Date: 20050527
  Receipt Date: 20050413
  Transmission Date: 20051028
  Serious: No
  Sender: FDA-Public Use
  Company Number: US-GLAXOSMITHKLINE-A0553985A

PATIENT
  Age: 41 Year
  Sex: Female

DRUGS (3)
  1. WELLBUTRIN XL [Suspect]
     Indication: DEPRESSION
     Dosage: 150MG PER DAY
     Route: 048
     Dates: start: 20050407
  2. PROZAC [Concomitant]
  3. SEROQUEL [Concomitant]
     Dosage: 25MG PER DAY
     Route: 065

REACTIONS (2)
  - POLLAKIURIA [None]
  - SLEEP DISORDER [None]
